FAERS Safety Report 10226526 (Version 1)
Quarter: 2014Q2

REPORT INFORMATION
  Report Type: Spontaneous
  Country: US (occurrence: US)
  Receive Date: 20140609
  Receipt Date: 20140609
  Transmission Date: 20141212
  Serious: No
  Sender: FDA-Public Use
  Company Number: US-AMGEN INC.-USASP2014014198

PATIENT
  Age: 49 Year
  Sex: Male

DRUGS (2)
  1. EPOGEN [Suspect]
     Indication: PRODUCT USED FOR UNKNOWN INDICATION
     Dosage: 0.05 ML, UNK
     Route: 065
     Dates: start: 20140226
  2. EPOGEN [Suspect]

REACTIONS (1)
  - Incorrect product storage [Unknown]
